FAERS Safety Report 7192758-6 (Version None)
Quarter: 2010Q4

REPORT INFORMATION
  Report Type: 
  Country: None (occurrence: None)
  Receive Date: 20101222
  Receipt Date: 20101222
  Transmission Date: 20110411
  Serious: Yes (Life-Threatening)
  Sender: FDA-Public Use
  Company Number: None

PATIENT
  Age: 54 Year
  Sex: Male
  Weight: 96.6 kg

DRUGS (1)
  1. VANCOMYCIN [Suspect]
     Indication: SURGERY
     Dosage: 1 GM ONCE IV
     Route: 042
     Dates: start: 20101025, end: 20101025

REACTIONS (4)
  - BLOOD PRESSURE DECREASED [None]
  - BRADYCARDIA [None]
  - CARDIO-RESPIRATORY ARREST [None]
  - RED MAN SYNDROME [None]
